FAERS Safety Report 5288055-6 (Version None)
Quarter: 2007Q1

REPORT INFORMATION
  Report Type: 
  Country: None (occurrence: None)
  Receive Date: 20070330
  Receipt Date: 20070320
  Transmission Date: 20070707
  Serious: Yes (Other)
  Sender: FDA-Public Use
  Company Number: 2007309791

PATIENT
  Sex: Female

DRUGS (1)
  1. VISINE L.R. [Suspect]
     Dosage: UNSPECIFIED, OPHTHALMIC
     Route: 047

REACTIONS (6)
  - CORNEAL ABRASION [None]
  - EYE BURNS [None]
  - EYELID OEDEMA [None]
  - INSTILLATION SITE ABNORMAL SENSATION [None]
  - STRESS [None]
  - VISION BLURRED [None]
